FAERS Safety Report 20112734 (Version 1)
Quarter: 2021Q4

REPORT INFORMATION
  Report Type: Report from Study
  Country: RU (occurrence: RU)
  Receive Date: 20211125
  Receipt Date: 20211125
  Transmission Date: 20220303
  Serious: Yes (Hospitalization)
  Sender: FDA-Public Use
  Company Number: RU-NOVARTISPH-NVSC2021RU267609

PATIENT
  Sex: Male
  Weight: 69 kg

DRUGS (1)
  1. MAYZENT [Suspect]
     Active Substance: SIPONIMOD
     Indication: Secondary progressive multiple sclerosis
     Dosage: 2 MG, QD (1 TABLET)
     Route: 048
     Dates: start: 20210202

REACTIONS (1)
  - Lung neoplasm malignant [Not Recovered/Not Resolved]
